FAERS Safety Report 6448253-2 (Version None)
Quarter: 2009Q4

REPORT INFORMATION
  Report Type: 
  Country: None (occurrence: None)
  Receive Date: 20091120
  Receipt Date: 20091113
  Transmission Date: 20100525
  Serious: Yes (Hospitalization)
  Sender: FDA-Public Use
  Company Number: FR-BRISTOL-MYERS SQUIBB COMPANY-14857668

PATIENT
  Age: 87 Year
  Sex: Male

DRUGS (7)
  1. COUMADIN [Suspect]
     Indication: THROMBOSIS PROPHYLAXIS
     Dosage: 1 DF= 0.75 (UNIT NOT SPECIFIED),DOSE INCREASED TO 5MG/DAY, MAINTAINED TO 4MG/D
     Dates: start: 20040101
  2. INSPRA [Suspect]
     Indication: CARDIAC FAILURE
     Dates: start: 20080501, end: 20090228
  3. COLCHIMAX [Suspect]
     Indication: GOUT
     Dates: start: 20090226, end: 20090303
  4. GLUCOR [Concomitant]
     Indication: DIABETES MELLITUS
  5. RAMIPRIL [Concomitant]
     Indication: HYPERTENSION
  6. DIFFU-K [Concomitant]
     Indication: HYPOKALAEMIA
     Dates: start: 20060501
  7. ACTIVATED CHARCOAL + SIMETICONE [Concomitant]
     Indication: DYSPEPSIA
     Dosage: TAKEN FROM BEFORE FEB 2009

REACTIONS (5)
  - BRONCHITIS [None]
  - INTERNATIONAL NORMALISED RATIO FLUCTUATION [None]
  - PERIPHERAL EMBOLISM [None]
  - TRANSIENT ISCHAEMIC ATTACK [None]
  - UNDERDOSE [None]
